FAERS Safety Report 5123104-7 (Version None)
Quarter: 2006Q4

REPORT INFORMATION
  Report Type: 
  Country: None (occurrence: None)
  Receive Date: 20061004
  Receipt Date: 20061004
  Transmission Date: 20070319
  Serious: Yes (Hospitalization)
  Sender: FDA-Public Use
  Company Number: None

PATIENT
  Age: 83 Year
  Sex: Male
  Weight: 68 kg

DRUGS (1)
  1. FELODIPINE [Suspect]
     Indication: HYPERTENSION
     Dosage: 5 MG PO DAILY
     Route: 048
     Dates: start: 20040728, end: 20060731

REACTIONS (1)
  - ORTHOSTATIC HYPOTENSION [None]
